FAERS Safety Report 5852122-6 (Version None)
Quarter: 2008Q3

REPORT INFORMATION
  Report Type: 
  Country: None (occurrence: None)
  Receive Date: 20080819
  Receipt Date: 20080806
  Transmission Date: 20090109
  Serious: Yes (Death, Hospitalization, Other)
  Sender: FDA-Public Use
  Company Number: 15421

PATIENT
  Age: 63 Year
  Sex: Male
  Weight: 53.978 kg

DRUGS (8)
  1. MORPHINE SULFATE [Suspect]
     Indication: CANCER PAIN
     Dosage: 60 MG BID ORALLY
     Route: 048
     Dates: start: 20071210, end: 20071217
  2. MORPHINE SULFATE [Suspect]
     Indication: LUNG NEOPLASM MALIGNANT
     Dosage: 60 MG BID ORALLY
     Route: 048
     Dates: start: 20071210, end: 20071217
  3. LORTAB [Concomitant]
  4. TRAZODONE HCL [Concomitant]
  5. PROTONIX [Concomitant]
  6. ENTOCORT EC [Concomitant]
  7. PROZAC [Concomitant]
  8. ZETIA [Concomitant]

REACTIONS (3)
  - ABASIA [None]
  - PHARMACEUTICAL PRODUCT COMPLAINT [None]
  - PNEUMONIA [None]
